FAERS Safety Report 18271972 (Version 1)
Quarter: 2020Q3

REPORT INFORMATION
  Report Type: Spontaneous
  Country: US (occurrence: US)
  Receive Date: 20200915
  Receipt Date: 20200915
  Transmission Date: 20201103
  Serious: Yes (Disabling)
  Sender: FDA-Public Use
  Company Number: None

PATIENT
  Age: 27 Year
  Sex: Male
  Weight: 67.5 kg

DRUGS (1)
  1. OSELTAMIVIR [Suspect]
     Active Substance: OSELTAMIVIR
     Indication: INFLUENZA
     Route: 048
     Dates: start: 20170111, end: 20170113

REACTIONS (6)
  - Near death experience [None]
  - Depression [None]
  - Asthenia [None]
  - Bedridden [None]
  - Cognitive disorder [None]
  - Feeling abnormal [None]

NARRATIVE: CASE EVENT DATE: 20170111
